FAERS Safety Report 4625959-9 (Version None)
Quarter: 2005Q1

REPORT INFORMATION
  Report Type: 
  Country: None (occurrence: None)
  Receive Date: 20050330
  Receipt Date: 20050316
  Transmission Date: 20050727
  Serious: Yes (Hospitalization)
  Sender: FDA-Public Use
  Company Number: USA040876422

PATIENT
  Age: 49 Year
  Sex: Male
  Weight: 55 kg

DRUGS (6)
  1. ALIMTA [Suspect]
     Indication: PERITONEAL MESOTHELIOMA MALIGNANT
     Dosage: 750 MG
     Dates: start: 20040416, end: 20040722
  2. CISPLATIN [Concomitant]
  3. VITAMIN B-12 [Concomitant]
  4. FOLIC ACID [Concomitant]
  5. DEXAMETHASONE [Concomitant]
  6. KYTRIL [Concomitant]

REACTIONS (8)
  - ABDOMINAL PAIN [None]
  - GLOMERULONEPHRITIS FOCAL [None]
  - NEPHRITIS INTERSTITIAL [None]
  - RENAL FAILURE [None]
  - RENAL INTERSTITIAL FIBROSIS [None]
  - RENAL TUBULAR ATROPHY [None]
  - VOMITING [None]
  - WEIGHT DECREASED [None]
